FAERS Safety Report 9183130 (Version 1)
Quarter: 2013Q1

REPORT INFORMATION
  Report Type: Spontaneous
  Country: US (occurrence: US)
  Receive Date: 20130322
  Receipt Date: 20130322
  Transmission Date: 20140127
  Serious: Yes (Other)
  Sender: FDA-Public Use
  Company Number: US-BRISTOL-MYERS SQUIBB COMPANY-16383648

PATIENT
  Age: 75 Year
  Sex: Male
  Weight: 76.19 kg

DRUGS (2)
  1. ERBITUX [Suspect]
     Indication: COLORECTAL CANCER
     Dosage: 2ND INF ON 30JAN2012
     Dates: start: 20120123
  2. ERBITUX [Suspect]
     Indication: LUNG NEOPLASM MALIGNANT
     Dosage: 2ND INF ON 30JAN2012
     Dates: start: 20120123

REACTIONS (2)
  - Rash [Recovering/Resolving]
  - Fatigue [Unknown]
